FAERS Safety Report 8407687 (Version 6)
Quarter: 2014Q1

REPORT INFORMATION
  Report Type: Report from Study
  Country: JP (occurrence: JP)
  Receive Date: 20120215
  Receipt Date: 20140116
  Transmission Date: 20141002
  Serious: Yes (Hospitalization)
  Sender: FDA-Public Use
  Company Number: JP-JNJFOC-20120205313

PATIENT
  Age: 71 Year
  Sex: Female
  Weight: 56 kg

DRUGS (28)
  1. SIMPONI [Suspect]
     Indication: RHEUMATOID ARTHRITIS
     Route: 058
     Dates: start: 20111227, end: 20111227
  2. SIMPONI [Suspect]
     Indication: RHEUMATOID ARTHRITIS
     Route: 058
     Dates: start: 20111129, end: 20111129
  3. SIMPONI [Suspect]
     Indication: RHEUMATOID ARTHRITIS
     Route: 058
     Dates: start: 20120124, end: 20120124
  4. SIMPONI [Suspect]
     Indication: RHEUMATOID ARTHRITIS
     Route: 058
     Dates: start: 20120220, end: 20120220
  5. SIMPONI [Suspect]
     Indication: RHEUMATOID ARTHRITIS
     Route: 058
     Dates: start: 20120319, end: 20120319
  6. SIMPONI [Suspect]
     Indication: RHEUMATOID ARTHRITIS
     Route: 058
     Dates: start: 20120417, end: 20120417
  7. SIMPONI [Suspect]
     Indication: RHEUMATOID ARTHRITIS
     Route: 058
     Dates: start: 20120514, end: 20120514
  8. SIMPONI [Suspect]
     Indication: RHEUMATOID ARTHRITIS
     Route: 058
     Dates: start: 20120611, end: 20120611
  9. SIMPONI [Suspect]
     Indication: RHEUMATOID ARTHRITIS
     Route: 058
     Dates: start: 20120709, end: 20120709
  10. SIMPONI [Suspect]
     Indication: RHEUMATOID ARTHRITIS
     Route: 058
     Dates: start: 20120806, end: 20120806
  11. SIMPONI [Suspect]
     Indication: RHEUMATOID ARTHRITIS
     Route: 058
     Dates: start: 20120903, end: 20120903
  12. SIMPONI [Suspect]
     Indication: RHEUMATOID ARTHRITIS
     Route: 058
     Dates: start: 20121001, end: 20121001
  13. SIMPONI [Suspect]
     Indication: RHEUMATOID ARTHRITIS
     Route: 058
     Dates: start: 20121029, end: 20121029
  14. SIMPONI [Suspect]
     Indication: RHEUMATOID ARTHRITIS
     Route: 058
     Dates: start: 20121126
  15. SIMPONI [Suspect]
     Indication: RHEUMATOID ARTHRITIS
     Route: 058
     Dates: start: 20111101, end: 20111101
  16. METHOTREXATE [Suspect]
     Indication: PRODUCT USED FOR UNKNOWN INDICATION
     Route: 048
     Dates: start: 201108, end: 20111205
  17. METHOTREXATE [Suspect]
     Indication: PRODUCT USED FOR UNKNOWN INDICATION
     Route: 048
     Dates: start: 20111229
  18. MOBIC [Concomitant]
     Indication: RHEUMATOID ARTHRITIS
     Route: 048
     Dates: end: 20120904
  19. FOLIAMIN [Concomitant]
     Indication: PROPHYLAXIS
     Route: 048
     Dates: end: 20111203
  20. SOFALCONE [Concomitant]
     Indication: GASTRITIS
     Route: 048
  21. TANATRIL [Concomitant]
     Indication: HYPERTENSION
     Route: 048
  22. TAKEPRON [Concomitant]
     Indication: GASTRITIS
     Route: 048
  23. FERO-GRADUMET [Concomitant]
     Indication: IRON DEFICIENCY ANAEMIA
     Route: 048
  24. METHYCOBAL [Concomitant]
     Indication: ARTERIAL OCCLUSIVE DISEASE
     Route: 048
  25. NEUTROGIN [Concomitant]
     Indication: ARTERIAL OCCLUSIVE DISEASE
     Route: 048
  26. DORNER [Concomitant]
     Indication: HYPERTENSION
     Route: 048
  27. LIPITOR [Concomitant]
     Indication: HYPERLIPIDAEMIA
     Route: 048
  28. SENNARIDE [Concomitant]
     Indication: CONSTIPATION
     Route: 048

REACTIONS (1)
  - Bronchopneumonia [Recovered/Resolved]
